FAERS Safety Report 9633759 (Version 1)
Quarter: 2013Q4

REPORT INFORMATION
  Report Type: Spontaneous
  Country: US (occurrence: None)
  Receive Date: 20131017
  Receipt Date: 20131017
  Transmission Date: 20140711
  Serious: Yes (Death)
  Sender: FDA-Public Use
  Company Number: 2013AP008645

PATIENT
  Age: 39 Year
  Sex: Male

DRUGS (7)
  1. AMLODIPINE BESYLATE TABLETS [Suspect]
  2. METFORMIN [Suspect]
     Route: 048
  3. HYDROCHLOROTHIAZIDE [Suspect]
     Route: 048
  4. METOPROLOL [Suspect]
     Route: 048
  5. POTASSIUM CHLORIDE [Suspect]
     Route: 048
  6. FUROSEMIDE [Suspect]
     Route: 048
  7. ACETAMINOPHEN [Suspect]
     Route: 048

REACTIONS (2)
  - Completed suicide [None]
  - Incorrect dose administered [None]
